FAERS Safety Report 17619584 (Version 1)
Quarter: 2020Q2

REPORT INFORMATION
  Report Type: Spontaneous
  Country: US (occurrence: US)
  Receive Date: 20200403
  Receipt Date: 20200403
  Transmission Date: 20200713
  Serious: No
  Sender: FDA-Public Use
  Company Number: US-RECORDATI RARE DISEASES-2082274

PATIENT
  Sex: Female
  Weight: 168 kg

DRUGS (1)
  1. CYSTADANE [Suspect]
     Active Substance: BETAINE
     Indication: HOMOCYSTINURIA

REACTIONS (3)
  - Nausea [Unknown]
  - Vomiting [Unknown]
  - Intentional product misuse [Unknown]
